FAERS Safety Report 23868486 (Version 1)
Quarter: 2024Q2

REPORT INFORMATION
  Report Type: Spontaneous
  Country: US (occurrence: US)
  Receive Date: 20240517
  Receipt Date: 20240517
  Transmission Date: 20240715
  Serious: No
  Sender: FDA-Public Use
  Company Number: US-Stemline Therapeutics, Inc.-2024ST001859

PATIENT
  Age: 51 Year
  Sex: Female

DRUGS (23)
  1. ORSERDU [Suspect]
     Active Substance: ELACESTRANT
     Indication: Product used for unknown indication
     Dosage: 345 MG
     Route: 048
  2. CALCIUM [Concomitant]
     Active Substance: CALCIUM
     Indication: Product used for unknown indication
  3. MAGNESIUM [Concomitant]
     Active Substance: MAGNESIUM
     Indication: Product used for unknown indication
  4. CoQ10 Gummies [Concomitant]
     Indication: Product used for unknown indication
  5. MAGNESIUM GLYCINATE [Concomitant]
     Active Substance: MAGNESIUM GLYCINATE
     Indication: Product used for unknown indication
  6. Stress B Complex [Concomitant]
     Indication: Product used for unknown indication
  7. IRON [Concomitant]
     Active Substance: IRON
     Indication: Product used for unknown indication
  8. VITAMIN D3 [Concomitant]
     Active Substance: CHOLECALCIFEROL
     Indication: Product used for unknown indication
  9. AZELASTINE HYDROCHLORIDE [Concomitant]
     Active Substance: AZELASTINE HYDROCHLORIDE
     Indication: Product used for unknown indication
     Route: 045
  10. LORAZEPAM [Concomitant]
     Active Substance: LORAZEPAM
     Indication: Product used for unknown indication
  11. ONDANSETRON HYDROCHLORIDE [Concomitant]
     Active Substance: ONDANSETRON HYDROCHLORIDE
     Indication: Product used for unknown indication
  12. VERZENIO [Concomitant]
     Active Substance: ABEMACICLIB
     Indication: Product used for unknown indication
  13. COREG [Concomitant]
     Active Substance: CARVEDILOL
     Indication: Product used for unknown indication
  14. GABAPENTIN [Concomitant]
     Active Substance: GABAPENTIN
     Indication: Product used for unknown indication
  15. LISINOPRIL [Concomitant]
     Active Substance: LISINOPRIL
     Indication: Product used for unknown indication
  16. LASIX [Concomitant]
     Active Substance: FUROSEMIDE
     Indication: Product used for unknown indication
  17. POTASSIUM CHLORIDE [Concomitant]
     Active Substance: POTASSIUM CHLORIDE
     Indication: Product used for unknown indication
  18. HERBALS [Concomitant]
     Active Substance: HERBALS
     Indication: Product used for unknown indication
  19. Mitocore [Concomitant]
     Indication: Product used for unknown indication
  20. RELORA [Concomitant]
     Indication: Product used for unknown indication
  21. FLAX SEED [Concomitant]
     Active Substance: FLAX SEED
     Indication: Product used for unknown indication
  22. Osteo Nutrients 2 [Concomitant]
     Indication: Product used for unknown indication
  23. RA Milk Thistle [Concomitant]
     Indication: Product used for unknown indication

REACTIONS (1)
  - Liver disorder [Unknown]
